FAERS Safety Report 10882559 (Version 6)
Quarter: 2015Q2

REPORT INFORMATION
  Report Type: Spontaneous
  Country: IT (occurrence: IT)
  Receive Date: 20150303
  Receipt Date: 20150520
  Transmission Date: 20150821
  Serious: Yes (Hospitalization)
  Sender: FDA-Public Use
  Company Number: IT-PFIZER INC-2015073248

PATIENT
  Age: 75 Year
  Sex: Male

DRUGS (8)
  1. XANAX [Suspect]
     Active Substance: ALPRAZOLAM
     Dosage: 4 MG, TOTAL
     Route: 048
     Dates: start: 20150209, end: 20150209
  2. NORVASC [Suspect]
     Active Substance: AMLODIPINE BESYLATE
     Dosage: 20 MG, TOTAL
     Route: 048
     Dates: start: 20150209, end: 20150209
  3. DILATREND [Suspect]
     Active Substance: CARVEDILOL
     Dosage: 50 MG, TOTAL
     Route: 048
     Dates: start: 20150209, end: 20150209
  4. LASIX [Suspect]
     Active Substance: FUROSEMIDE
     Dosage: 100 MG, TOTAL
     Route: 048
     Dates: start: 20150209, end: 20150209
  5. KEPPRA [Suspect]
     Active Substance: LEVETIRACETAM
     Dosage: 2000 MG, TOTAL
     Route: 048
     Dates: start: 20150209, end: 20150209
  6. LANSOPRAZOLE. [Suspect]
     Active Substance: LANSOPRAZOLE
     Dosage: 60 MG, TOTAL
     Route: 048
     Dates: start: 20150209, end: 20150209
  7. ZOLPIDEM HEMITARTRATE [Suspect]
     Active Substance: ZOLPIDEM\ZOLPIDEM TARTRATE
     Dosage: 40 MG, TOTAL
     Route: 048
     Dates: start: 20150209, end: 20150209
  8. SIVASTIN [Suspect]
     Active Substance: SIMVASTATIN
     Dosage: 80 MG, TOTAL
     Route: 048
     Dates: start: 20150209, end: 20150209

REACTIONS (3)
  - Overdose [Recovered/Resolved]
  - Syncope [Recovered/Resolved]
  - Drug abuse [Recovered/Resolved]

NARRATIVE: CASE EVENT DATE: 20150209
